FAERS Safety Report 9534216 (Version 1)
Quarter: 2013Q3

REPORT INFORMATION
  Report Type: Report from Study
  Country: DE (occurrence: DE)
  Receive Date: 20130918
  Receipt Date: 20130918
  Transmission Date: 20140515
  Serious: Yes (Hospitalization)
  Sender: FDA-Public Use
  Company Number: DE-GLAXOSMITHKLINE-A0800859A

PATIENT
  Age: 54 Year
  Sex: Male
  Weight: 67 kg

DRUGS (3)
  1. LAPATINIB [Suspect]
     Indication: SQUAMOUS CELL CARCINOMA OF HEAD AND NECK
     Dosage: 1500MG PER DAY
     Route: 048
     Dates: start: 20090630
  2. CISPLATIN [Suspect]
     Indication: SQUAMOUS CELL CARCINOMA OF HEAD AND NECK
     Dosage: 184MGM2 PER DAY
     Route: 042
     Dates: start: 20090707
  3. RADIOTHERAPY [Concomitant]
     Indication: SQUAMOUS CELL CARCINOMA OF HEAD AND NECK
     Dosage: 8GY VARIABLE DOSE
     Route: 061
     Dates: start: 20090706

REACTIONS (2)
  - Mucosal inflammation [Recovered/Resolved]
  - Weight decreased [Recovered/Resolved]
